FAERS Safety Report 8962113 (Version 1)
Quarter: 2012Q4

REPORT INFORMATION
  Report Type: 
  Country: US (occurrence: US)
  Receive Date: 20121212
  Receipt Date: 20121212
  Transmission Date: 20130627
  Serious: Yes (Hospitalization, Disabling)
  Sender: FDA-Public Use
  Company Number: US-ARROW-2012-14713

PATIENT
  Age: 90 Year
  Sex: Male

DRUGS (5)
  1. AMIODARONE HYDROCHLORIDE (UNKNOWN) [Suspect]
     Indication: ARRHYTHMIA PROPHYLAXIS
     Dosage: 100 mg, daily
     Route: 065
  2. AMIODARONE HYDROCHLORIDE (UNKNOWN) [Suspect]
     Dosage: 200 mg, daily
     Route: 065
  3. CLONAZEPAM (UNKNOWN) [Suspect]
     Indication: PRODUCT USED FOR UNKNOWN INDICATION
     Dosage: 0.5 mg, UNK
     Route: 065
  4. LEVETIRACETAM (UNKNOWN) [Suspect]
     Indication: PRODUCT USED FOR UNKNOWN INDICATION
     Dosage: 250 mg, bid
     Route: 065
  5. DIGOXIN [Suspect]
     Indication: ARRHYTHMIA PROPHYLAXIS
     Dosage: UNK
     Route: 065

REACTIONS (3)
  - Myoclonus [Recovered/Resolved]
  - Somnolence [Recovered/Resolved]
  - Fatigue [Recovered/Resolved]
